FAERS Safety Report 8593735-0 (Version None)
Quarter: 2012Q3

REPORT INFORMATION
  Report Type: 
  Country: None (occurrence: None)
  Receive Date: 20120814
  Receipt Date: 20120801
  Transmission Date: 20120928
  Serious: Yes (Other)
  Sender: FDA-Public Use
  Company Number: GB-FRI-1000037744

PATIENT
  Age: 65 Year
  Sex: Female
  Weight: 69.85 kg

DRUGS (6)
  1. DOMPERIDONE [Suspect]
     Indication: ACID BASE BALANCE ABNORMAL
     Dosage: 3 DF
     Route: 048
     Dates: start: 20120301
  2. LYRICA [Suspect]
     Indication: STRESS
     Dosage: 1 DF
     Route: 048
     Dates: start: 20110919
  3. CITALOPRAM HYDROBROMIDE [Suspect]
     Indication: ANXIETY
     Dosage: 1 DF
     Route: 048
     Dates: start: 20110823
  4. ATENOLOL [Suspect]
     Dosage: 1 DF
     Dates: start: 20111115
  5. RANITIDINE [Suspect]
     Indication: HERNIA
     Dosage: 2 DF
     Route: 048
     Dates: start: 20120502
  6. ATORVASTATIN [Suspect]
     Indication: HYPERCHOLESTEROLAEMIA
     Dosage: 1 DF
     Route: 048
     Dates: start: 20110914

REACTIONS (2)
  - GLOSSODYNIA [None]
  - BURNING SENSATION [None]
